FAERS Safety Report 4491084-3 (Version None)
Quarter: 2004Q4

REPORT INFORMATION
  Report Type: 
  Country: None (occurrence: None)
  Receive Date: 20041102
  Receipt Date: 20041026
  Transmission Date: 20050328
  Serious: Yes (Hospitalization)
  Sender: FDA-Public Use
  Company Number: US-MERCK-0410USA03972

PATIENT
  Age: 57 Year
  Sex: Female

DRUGS (8)
  1. VIOXX [Suspect]
     Indication: ARTHRITIS
     Route: 048
  2. GLYBURIDE [Concomitant]
     Route: 065
  3. NEXIUM [Concomitant]
     Route: 065
  4. METFORMIN [Concomitant]
     Route: 065
  5. LIPITOR [Concomitant]
     Route: 065
  6. ALLEGRA [Concomitant]
     Route: 065
  7. ALBUTEROL [Concomitant]
     Route: 065
  8. ASPIRIN [Concomitant]
     Route: 065

REACTIONS (3)
  - CEREBROVASCULAR ACCIDENT [None]
  - CHEST PAIN [None]
  - HEART RATE IRREGULAR [None]
